FAERS Safety Report 23398999 (Version 3)
Quarter: 2024Q2

REPORT INFORMATION
  Report Type: Report from Study
  Country: US (occurrence: US)
  Receive Date: 20240112
  Receipt Date: 20240415
  Transmission Date: 20240716
  Serious: Yes (Other)
  Sender: FDA-Public Use
  Company Number: US-ABBVIE-5581604

PATIENT
  Sex: Male

DRUGS (2)
  1. SKYRIZI [Suspect]
     Active Substance: RISANKIZUMAB-RZAA
     Indication: Crohn^s disease
     Dosage: LAST ADMIN DATE: 2023/06
     Route: 058
     Dates: start: 20230623
  2. SKYRIZI [Suspect]
     Active Substance: RISANKIZUMAB-RZAA
     Route: 058
     Dates: start: 20230701

REACTIONS (4)
  - Small intestinal stenosis [Not Recovered/Not Resolved]
  - Abdominal operation [Unknown]
  - Gastrointestinal disorder [Not Recovered/Not Resolved]
  - Therapeutic product effect incomplete [Unknown]
